FAERS Safety Report 7970702-9 (Version None)
Quarter: 2011Q4

REPORT INFORMATION
  Report Type: 
  Country: None (occurrence: None)
  Receive Date: 20111212
  Receipt Date: 20111205
  Transmission Date: 20120403
  Serious: Yes (Hospitalization)
  Sender: FDA-Public Use
  Company Number: GR-B.I. PHARMACEUTICALS,INC./RIDGEFIELD-2011-EU-00918GB

PATIENT
  Age: 75 Year
  Sex: Male

DRUGS (2)
  1. PRADAXA [Suspect]
     Indication: ATRIAL FIBRILLATION
     Dosage: 220 MG
     Route: 048
     Dates: start: 20111130, end: 20111202
  2. UNSPECIFIED DRUG FOR HYPERTENSION [Concomitant]
     Indication: HYPERTENSION

REACTIONS (2)
  - GASTROINTESTINAL HAEMORRHAGE [None]
  - MEDICATION ERROR [None]
